FAERS Safety Report 5629656-2 (Version None)
Quarter: 2008Q1

REPORT INFORMATION
  Report Type: 
  Country: None (occurrence: None)
  Receive Date: 20080218
  Receipt Date: 20080212
  Transmission Date: 20080703
  Serious: Yes (Other)
  Sender: FDA-Public Use
  Company Number: B0492888A

PATIENT
  Age: 32 Year
  Sex: Male

DRUGS (1)
  1. PAXIL [Suspect]
     Indication: DEPRESSION
     Route: 048
     Dates: start: 20070403

REACTIONS (8)
  - ABNORMAL BEHAVIOUR [None]
  - AKATHISIA [None]
  - DRUG WITHDRAWAL SYNDROME [None]
  - EXTRAPYRAMIDAL DISORDER [None]
  - FATIGUE [None]
  - MYDRIASIS [None]
  - NAUSEA [None]
  - NYSTAGMUS [None]
